FAERS Safety Report 5914460-8 (Version None)
Quarter: 2008Q4

REPORT INFORMATION
  Report Type: 
  Country: None (occurrence: None)
  Receive Date: 20081007
  Receipt Date: 20080924
  Transmission Date: 20090506
  Serious: Yes (Other)
  Sender: FDA-Public Use
  Company Number: 1-16671245

PATIENT
  Age: 13 Year
  Sex: Female
  Weight: 63.5036 kg

DRUGS (1)
  1. OVIDE [Suspect]
     Indication: LICE INFESTATION
     Dosage: ONE BOTTLE TO SCALP, ONCE, CUTANEOUS
     Route: 003
     Dates: start: 20080924, end: 20080924

REACTIONS (6)
  - APPLICATION SITE ERYTHEMA [None]
  - BLISTER [None]
  - CAUSTIC INJURY [None]
  - PAIN [None]
  - SCAB [None]
  - SKIN BURNING SENSATION [None]
